FAERS Safety Report 8999231 (Version 3)
Quarter: 2013Q2

REPORT INFORMATION
  Report Type: Spontaneous
  Country: GB (occurrence: GB)
  Receive Date: 20130103
  Receipt Date: 20130603
  Transmission Date: 20140414
  Serious: Yes (Hospitalization, Other)
  Sender: FDA-Public Use
  Company Number: PHFR2012GB005293

PATIENT
  Age: 41 Year
  Sex: Male

DRUGS (6)
  1. CLOZAPINE [Suspect]
     Indication: SCHIZOPHRENIA, PARANOID TYPE
     Dosage: 375 MG, UNK
     Dates: start: 20100823
  2. CLOZAPINE [Suspect]
     Dosage: 325 MG, UNK
     Route: 048
  3. CLOZAPINE [Suspect]
     Dosage: 275 MG, UNK
     Route: 048
     Dates: start: 201209, end: 20121002
  4. CO-CODAMOL [Concomitant]
  5. RISPERIDONE [Concomitant]
     Dosage: 4 MG, BID
  6. SERTRALINE [Concomitant]
     Dosage: 100 MG, UNK

REACTIONS (17)
  - Myocarditis [Recovered/Resolved]
  - Tachycardia [Recovered/Resolved]
  - Orthostatic hypotension [Recovered/Resolved]
  - Dizziness [Unknown]
  - Aortic dilatation [Recovered/Resolved]
  - Hepatitis C [Recovered/Resolved]
  - Psoriasis [Unknown]
  - Asthma [Unknown]
  - C-reactive protein increased [Recovered/Resolved]
  - Pallor [Recovered/Resolved]
  - Asthenia [Recovered/Resolved]
  - Troponin T increased [Recovered/Resolved]
  - Fatigue [Unknown]
  - Depression [Unknown]
  - Back pain [Unknown]
  - Heart rate decreased [Unknown]
  - Blood pressure systolic increased [Unknown]
